FAERS Safety Report 24041322 (Version 1)
Quarter: 2024Q3

REPORT INFORMATION
  Report Type: Spontaneous
  Country: US (occurrence: US)
  Receive Date: 20240702
  Receipt Date: 20240702
  Transmission Date: 20241016
  Serious: No
  Sender: SAREPTA THERAPEUTICS
  Company Number: US-SAREPTA THERAPEUTICS INC.-SRP2023-003607

PATIENT
  Age: 19 Year
  Sex: Male
  Weight: 32.6 kg

DRUGS (16)
  1. EXONDYS 51 [Suspect]
     Active Substance: ETEPLIRSEN
     Indication: Duchenne muscular dystrophy
     Dosage: UNK
     Route: 042
     Dates: start: 20170802
  2. EXONDYS 51 [Suspect]
     Active Substance: ETEPLIRSEN
     Dosage: 1900 MILLIGRAM WEEKLY
     Route: 042
     Dates: start: 20180104
  3. EXONDYS 51 [Suspect]
     Active Substance: ETEPLIRSEN
     Dosage: 50 MILLIGRAM PER MILLILITRE
     Route: 042
     Dates: start: 20220525
  4. EXONDYS 51 [Suspect]
     Active Substance: ETEPLIRSEN
     Dosage: 1400 MILLIGRAM
     Route: 042
     Dates: start: 20230630, end: 20230714
  5. EXONDYS 51 [Suspect]
     Active Substance: ETEPLIRSEN
     Dosage: 1000 MILLIGRAM
     Route: 042
     Dates: start: 20230724
  6. INSPRA [Concomitant]
     Active Substance: EPLERENONE
     Indication: Product used for unknown indication
     Dosage: 25 MILLIGRAM, QD
     Route: 048
     Dates: start: 20220131
  7. INSPRA [Concomitant]
     Active Substance: EPLERENONE
     Dosage: UNK
  8. COREG [Concomitant]
     Active Substance: CARVEDILOL
     Indication: Product used for unknown indication
     Dosage: 3.125 MILLIGRAM, BID
     Route: 048
     Dates: start: 20220304
  9. ALBUTEROL [Concomitant]
     Active Substance: ALBUTEROL
     Indication: Product used for unknown indication
     Dosage: 2 PUFFS, Q4H AS NEEDED
     Dates: start: 20210427
  10. COZAAR [Concomitant]
     Active Substance: LOSARTAN POTASSIUM
     Indication: Product used for unknown indication
     Dosage: 50 MILLIGRAM, QD AT BEDTIME
     Dates: start: 20200616
  11. FLUTICASONE [Concomitant]
     Active Substance: FLUTICASONE
     Indication: Product used for unknown indication
     Dosage: 200 MICROGRAM, BID
     Route: 045
     Dates: start: 20140121
  12. LORATADINE [Concomitant]
     Active Substance: LORATADINE
     Indication: Product used for unknown indication
     Dosage: 10 MILLIGRAM, QD
     Route: 048
     Dates: start: 20150715
  13. CHOLECALCIFEROL [Concomitant]
     Active Substance: CHOLECALCIFEROL
     Indication: Product used for unknown indication
     Dosage: 2000 UNITS
     Route: 048
     Dates: start: 20110502
  14. MIRALAX [Concomitant]
     Active Substance: POLYETHYLENE GLYCOL 3350
     Indication: Product used for unknown indication
     Dosage: UNK
     Route: 048
     Dates: start: 20080112
  15. .ALPHA.-TOCOPHEROL [Concomitant]
     Active Substance: .ALPHA.-TOCOPHEROL
     Indication: Product used for unknown indication
     Dosage: 600 UNIT
     Route: 048
     Dates: start: 20130913
  16. EMLA [Concomitant]
     Active Substance: LIDOCAINE\PRILOCAINE
     Indication: Product used for unknown indication
     Dosage: UNK
     Route: 061
     Dates: start: 20160816

REACTIONS (3)
  - Mastication disorder [Unknown]
  - Weight decreased [Unknown]
  - Overdose [Unknown]

NARRATIVE: CASE EVENT DATE: 20230125
